FAERS Safety Report 24922661 (Version 1)
Quarter: 2025Q1

REPORT INFORMATION
  Report Type: Spontaneous
  Country: GB (occurrence: GB)
  Receive Date: 20250204
  Receipt Date: 20250204
  Transmission Date: 20250409
  Serious: Yes (Hospitalization, Other)
  Sender: MERCK
  Company Number: None

PATIENT
  Age: 57 Year
  Sex: Male

DRUGS (1)
  1. ELBASVIR\GRAZOPREVIR [Suspect]
     Active Substance: ELBASVIR\GRAZOPREVIR
     Dosage: ONE TABLET ONCE DAILY FOR 84 DAYS.
     Route: 048
     Dates: start: 20241107

REACTIONS (1)
  - Pemphigoid [Not Recovered/Not Resolved]
